FAERS Safety Report 23669994 (Version 9)
Quarter: 2024Q3

REPORT INFORMATION
  Report Type: Spontaneous
  Country: US (occurrence: US)
  Receive Date: 20240325
  Receipt Date: 20240925
  Transmission Date: 20241017
  Serious: Yes (Other)
  Sender: BRISTOL MYERS SQUIBB
  Company Number: US-BRISTOL-MYERS SQUIBB COMPANY-2024-047467

PATIENT
  Age: 82 Year
  Sex: Female

DRUGS (7)
  1. POMALYST [Suspect]
     Active Substance: POMALIDOMIDE
     Indication: Plasma cell myeloma
     Dosage: FREQUENCY: TAKE 1 CAPSULE BY MOUTH EVERY DAY ON DAYS 1-21 THEN RESUME AFTER 7 DAYS OFF
     Route: 048
  2. POMALYST [Suspect]
     Active Substance: POMALIDOMIDE
     Indication: Panic disorder
     Dosage: TAKE 1 CAPSULE BY MOUTH EVERY DAY ON DAYS 1-21 THEN RESUME AFTER 7 DAYS OFF
     Route: 048
  3. POMALYST [Suspect]
     Active Substance: POMALIDOMIDE
     Indication: Bone disorder
     Dosage: FREQUENCY: TAKE 1 CAPSULE DAILY ON DAYS 1-21 THEN RESUME AFTER 7 DAYS OFF
     Route: 048
  4. POMALYST [Suspect]
     Active Substance: POMALIDOMIDE
     Dosage: FREQUENCY: TAKE 1 CAPSULE BY MOUTH DAILY ON DAYS 1-21 THEN RESUME AFTER 7 DAYS OFF
     Route: 048
  5. POMALYST [Suspect]
     Active Substance: POMALIDOMIDE
     Dosage: FREQUENCY: TAKE 1 CAPSULE BY MOUTH DAILY ON DAYS 1-21 THEN RESUME AFTER 7 DAYS OFF
     Route: 048
  6. METOPROLOL [Concomitant]
     Active Substance: METOPROLOL
     Indication: Product used for unknown indication
  7. ESCITALOPRAM [Concomitant]
     Active Substance: ESCITALOPRAM OXALATE
     Indication: Product used for unknown indication

REACTIONS (11)
  - Upper respiratory tract infection [Recovered/Resolved]
  - Product dose omission issue [Recovered/Resolved]
  - Fatigue [Unknown]
  - Malaise [Recovering/Resolving]
  - Urinary tract infection [Recovering/Resolving]
  - Somnolence [Recovering/Resolving]
  - Product dose omission in error [Unknown]
  - Thrombosis [Recovering/Resolving]
  - Arthropod sting [Unknown]
  - White blood cell count decreased [Unknown]
  - Platelet count decreased [Unknown]

NARRATIVE: CASE EVENT DATE: 20240501
